FAERS Safety Report 5383311-5 (Version None)
Quarter: 2007Q3

REPORT INFORMATION
  Report Type: 
  Country: None (occurrence: None)
  Receive Date: 20070710
  Receipt Date: 20070629
  Transmission Date: 20080115
  Serious: Yes (Other)
  Sender: FDA-Public Use
  Company Number: RU-PFIZER INC-2007053893

PATIENT
  Age: 59 Year
  Sex: Female

DRUGS (3)
  1. PREGABALIN [Suspect]
     Indication: OSTEOARTHRITIS
     Route: 048
     Dates: start: 20070624, end: 20070625
  2. PREGABALIN [Suspect]
     Indication: RADICULOPATHY
  3. PREGABALIN [Suspect]
     Indication: NEUROPATHY

REACTIONS (3)
  - BLOOD PRESSURE INCREASED [None]
  - PSYCHOMOTOR RETARDATION [None]
  - SOMNOLENCE [None]
